FAERS Safety Report 5907008-5 (Version None)
Quarter: 2008Q4

REPORT INFORMATION
  Report Type: 
  Country: None (occurrence: None)
  Receive Date: 20081002
  Receipt Date: 20081002
  Transmission Date: 20090506
  Serious: No
  Sender: FDA-Public Use
  Company Number: None

PATIENT
  Age: 19 Year
  Sex: Female
  Weight: 68.4932 kg

DRUGS (1)
  1. LEVAQUIN [Suspect]
     Indication: WHITE BLOOD CELL COUNT INCREASED
     Dosage: 500 MG TABLET 1 TIME PER DAY PO
     Route: 048
     Dates: start: 20080914, end: 20080918

REACTIONS (8)
  - ARTHRITIS [None]
  - DIZZINESS [None]
  - FATIGUE [None]
  - JOINT SWELLING [None]
  - MOOD SWINGS [None]
  - NIGHTMARE [None]
  - TENDONITIS [None]
  - WHITE BLOOD CELL COUNT INCREASED [None]
